FAERS Safety Report 20939856 (Version 7)
Quarter: 2022Q4

REPORT INFORMATION
  Report Type: Other
  Country: AU (occurrence: AU)
  Receive Date: 20220609
  Receipt Date: 20221214
  Transmission Date: 20230112
  Serious: Yes (Hospitalization)
  Sender: FDA-Public Use
  Company Number: AU-TOLMAR, INC.-22AU034698

PATIENT
  Age: 81 Year
  Sex: Male

DRUGS (5)
  1. ELIGARD [Suspect]
     Active Substance: LEUPROLIDE ACETATE
     Indication: Prostate cancer
     Dosage: 7.5 MILLIGRAM, Q 1 MONTH
     Dates: start: 20220518
  2. ELIGARD [Suspect]
     Active Substance: LEUPROLIDE ACETATE
     Dosage: 7.5 MILLIGRAM, Q 1 MONTH
     Dates: start: 20221017
  3. ELIGARD [Suspect]
     Active Substance: LEUPROLIDE ACETATE
     Dosage: 7.5 MILLIGRAM, Q 1 MONTH
     Dates: start: 20221130
  4. INSULIN NOS [Concomitant]
     Active Substance: INSULIN NOS
     Indication: Diabetes mellitus
  5. UNSPECIFIED INGREDIENT [Concomitant]
     Active Substance: UNSPECIFIED INGREDIENT
     Indication: Diabetes mellitus

REACTIONS (11)
  - Pneumonia viral [Recovered/Resolved]
  - Weight decreased [Unknown]
  - Gastrooesophageal reflux disease [Not Recovered/Not Resolved]
  - Abdominal distension [Unknown]
  - Decreased appetite [Unknown]
  - Abdominal pain [Unknown]
  - Insomnia [Unknown]
  - Hot flush [Not Recovered/Not Resolved]
  - Weight increased [Not Recovered/Not Resolved]
  - Malaise [Unknown]
  - Injection site pain [Unknown]

NARRATIVE: CASE EVENT DATE: 20221017
